FAERS Safety Report 10073644 (Version 1)
Quarter: 2014Q2

REPORT INFORMATION
  Report Type: Report from Study
  Country: US (occurrence: US)
  Receive Date: 20140411
  Receipt Date: 20140411
  Transmission Date: 20141212
  Serious: Yes (Hospitalization, Other)
  Sender: FDA-Public Use
  Company Number: US-ABBVIE-14P-163-1220676-00

PATIENT
  Sex: Female
  Weight: 86.26 kg

DRUGS (2)
  1. HUMIRA [Suspect]
     Indication: COLITIS ULCERATIVE
     Route: 058
     Dates: start: 201302, end: 201308
  2. OMEPRAZOLE [Concomitant]
     Indication: DYSPEPSIA

REACTIONS (5)
  - Joint effusion [Recovered/Resolved]
  - Colectomy [Recovered/Resolved]
  - Ileostomy [Recovered/Resolved]
  - Diarrhoea [Not Recovered/Not Resolved]
  - Therapeutic product ineffective [Unknown]
